FAERS Safety Report 9686780 (Version 1)
Quarter: 2013Q4

REPORT INFORMATION
  Report Type: Spontaneous
  Country: US (occurrence: US)
  Receive Date: 20131113
  Receipt Date: 20131113
  Transmission Date: 20140711
  Serious: No
  Sender: FDA-Public Use
  Company Number: US-BAYER-2013-135406

PATIENT
  Age: 62 Year
  Sex: Female
  Weight: 73 kg

DRUGS (3)
  1. ALEVE LIQUID GELS [Suspect]
     Indication: MUSCLE STRAIN
     Dosage: 1 UNITS, GELCAP BID
     Route: 048
     Dates: start: 20131001, end: 20131027
  2. ALEVE CAPLET [Suspect]
     Dosage: 1 DF, BID
     Route: 048
     Dates: start: 20131001, end: 20131027
  3. ALEVE CAPLET [Suspect]

REACTIONS (4)
  - Contusion [Recovered/Resolved]
  - Pruritus [Not Recovered/Not Resolved]
  - Rash generalised [Not Recovered/Not Resolved]
  - Incorrect drug administration duration [None]
